FAERS Safety Report 11655036 (Version 1)
Quarter: 2015Q4

REPORT INFORMATION
  Report Type: Spontaneous
  Country: DK (occurrence: DK)
  Receive Date: 20151023
  Receipt Date: 20151023
  Transmission Date: 20160304
  Serious: Yes (Hospitalization)
  Sender: FDA-Public Use
  Company Number: DK-PFIZER INC-2015352647

PATIENT

DRUGS (5)
  1. LYRICA [Suspect]
     Active Substance: PREGABALIN
     Dosage: 225 MG + 125 MG DAILY
  2. LYRICA [Suspect]
     Active Substance: PREGABALIN
     Dosage: 225 MG OR 300 MG
  3. ANTABUSE [Concomitant]
     Active Substance: DISULFIRAM
  4. INVEGA [Concomitant]
     Active Substance: PALIPERIDONE
     Dosage: 9 MG, UNK
  5. SEROQUEL [Concomitant]
     Active Substance: QUETIAPINE FUMARATE
     Dosage: APPROXIMATELY 300-400 MG, MAX 700 MG

REACTIONS (8)
  - Musculoskeletal stiffness [Unknown]
  - Muscle spasms [Unknown]
  - Slow speech [Unknown]
  - Malaise [Unknown]
  - Disorientation [Unknown]
  - Muscle rigidity [Unknown]
  - Confusional state [Unknown]
  - Cerebrovascular accident [Unknown]
